FAERS Safety Report 8491240 (Version 2)
Quarter: 2012Q4

REPORT INFORMATION
  Report Type: 
  Country: TR (occurrence: TR)
  Receive Date: 20120403
  Receipt Date: 20121203
  Transmission Date: 20130627
  Serious: Yes (Death, Hospitalization)
  Sender: FDA-Public Use
  Company Number: TR-RANBAXY-2012RR-54198

PATIENT
  Age: 10 Year
  Sex: Male

DRUGS (4)
  1. CEFUROXIME [Suspect]
     Indication: PYREXIA
     Dosage: UNK
     Route: 065
  2. CEFUROXIME [Suspect]
     Indication: COUGH
  3. IBUPROFEN [Suspect]
     Indication: PYREXIA
     Dosage: UNK
     Route: 065
  4. IBUPROFEN [Suspect]
     Indication: COUGH

REACTIONS (1)
  - Toxic epidermal necrolysis [Recovering/Resolving]
